FAERS Safety Report 5363525-0 (Version None)
Quarter: 2007Q2

REPORT INFORMATION
  Report Type: 
  Country: None (occurrence: None)
  Receive Date: 20070620
  Receipt Date: 20070118
  Transmission Date: 20071010
  Serious: No
  Sender: FDA-Public Use
  Company Number: US-BRISTOL-MYERS SQUIBB COMPANY-13646757

PATIENT
  Age: 62 Year
  Sex: Male

DRUGS (10)
  1. GLUCOPHAGE [Suspect]
  2. ATENOLOL [Suspect]
  3. FOSINOPRIL SODIUM [Suspect]
  4. GLIPIZIDE [Suspect]
  5. FUROSEMIDE [Suspect]
  6. LIPITOR [Suspect]
  7. AVODART [Suspect]
  8. POTASSIUM ACETATE [Suspect]
  9. AVANDIA [Suspect]
  10. DOXAZOSIN MESYLATE [Suspect]

REACTIONS (1)
  - DIZZINESS [None]
